FAERS Safety Report 8923306 (Version 1)
Quarter: 2012Q4

REPORT INFORMATION
  Report Type: Spontaneous
  Country: AR (occurrence: None)
  Receive Date: 20121115
  Receipt Date: 20121115
  Transmission Date: 20130627
  Serious: Yes (Hospitalization)
  Sender: FDA-Public Use
  Company Number: VAL_00985_2012

PATIENT
  Age: 89 Year
  Sex: Male

DRUGS (1)
  1. LOPRESSOR [Suspect]
     Indication: CARDIAC DISORDER

REACTIONS (7)
  - Calculus urethral [None]
  - Pyuria [None]
  - Escherichia infection [None]
  - Nosocomial infection [None]
  - Hypotension [None]
  - Hypertension [None]
  - Blood pressure fluctuation [None]
